FAERS Safety Report 11898096 (Version 1)
Quarter: 2016Q1

REPORT INFORMATION
  Report Type: Spontaneous
  Country: US (occurrence: US)
  Receive Date: 20160108
  Receipt Date: 20160108
  Transmission Date: 20160526
  Serious: No
  Sender: FDA-Public Use
  Company Number: US-DRREDDYS-USA/USA/15/0051625

PATIENT
  Age: 57 Year
  Sex: Male

DRUGS (1)
  1. CONTROL STEP 2 14MG [Suspect]
     Active Substance: NICOTINE
     Indication: OFF LABEL USE
     Dosage: 1 DF, QD
     Route: 061
     Dates: start: 20141113, end: 20141202

REACTIONS (2)
  - Blister [Recovering/Resolving]
  - Erythema [Recovering/Resolving]

NARRATIVE: CASE EVENT DATE: 201411
